FAERS Safety Report 11422973 (Version 7)
Quarter: 2019Q3

REPORT INFORMATION
  Report Type: Report from Study
  Country: US (occurrence: US)
  Receive Date: 20150827
  Receipt Date: 20190919
  Transmission Date: 20191004
  Serious: Yes (Other)
  Sender: FDA-Public Use
  Company Number: PHHY2014US134401

PATIENT
  Age: 47 Year
  Sex: Female

DRUGS (19)
  1. KETOCONAZOLE. [Concomitant]
     Active Substance: KETOCONAZOLE
     Indication: DERMATOSIS
     Dosage: UNK
     Route: 065
     Dates: start: 20141223
  2. AMBIEN [Concomitant]
     Active Substance: ZOLPIDEM TARTRATE
     Indication: SLEEP APNOEA SYNDROME
     Dosage: UNK
     Route: 065
     Dates: start: 20150625, end: 20160127
  3. GILENYA [Suspect]
     Active Substance: FINGOLIMOD HYDROCHLORIDE
     Indication: MULTIPLE SCLEROSIS
     Dosage: UNK, QD
     Route: 048
  4. FIBER [Concomitant]
     Active Substance: PSYLLIUM HUSK
     Indication: SUPPLEMENTATION THERAPY
     Dosage: UNK
     Route: 065
     Dates: start: 20150114
  5. PRENATAL [Concomitant]
     Active Substance: VITAMINS
     Indication: SUPPLEMENTATION THERAPY
     Dosage: UNK
     Route: 065
     Dates: start: 20120927
  6. ARTIFICIAL TEARS//HYPROMELLOSE [Concomitant]
     Indication: PROPHYLAXIS
     Dosage: UNK
     Route: 065
     Dates: start: 20120927, end: 20150114
  7. TOVIAZ [Concomitant]
     Active Substance: FESOTERODINE FUMARATE
     Indication: HYPERTONIC BLADDER
     Dosage: UNK
     Route: 065
     Dates: start: 20120927, end: 20130114
  8. COLACE [Concomitant]
     Active Substance: DOCUSATE SODIUM
     Indication: CONSTIPATION
     Dosage: UNK
     Route: 065
     Dates: start: 20120927
  9. CLINDAMYCIN. [Concomitant]
     Active Substance: CLINDAMYCIN
     Indication: DERMATOSIS
     Dosage: UNK
     Route: 065
     Dates: start: 20141223
  10. MYRBETRIQ [Concomitant]
     Active Substance: MIRABEGRON
     Indication: HYPERTONIC BLADDER
     Dosage: UNK
     Route: 065
     Dates: start: 20130924, end: 20141223
  11. CORDRAN [Concomitant]
     Active Substance: FLURANDRENOLIDE
     Indication: DERMATOSIS
     Dosage: UNK
     Route: 065
     Dates: start: 20141223
  12. MAGNESIUM [Concomitant]
     Active Substance: MAGNESIUM
     Indication: SUPPLEMENTATION THERAPY
     Dosage: UNK
     Route: 065
     Dates: start: 20150114
  13. TIZANIDINE. [Concomitant]
     Active Substance: TIZANIDINE
     Indication: MUSCLE SPASTICITY
     Dosage: UNK
     Route: 065
     Dates: start: 20140428
  14. MULTI VIT [Concomitant]
     Active Substance: VITAMINS
     Indication: SUPPLEMENTATION THERAPY
     Dosage: UNK
     Route: 065
     Dates: start: 20150114
  15. BOTOX [Concomitant]
     Active Substance: ONABOTULINUMTOXINA
     Indication: HYPERTONIC BLADDER
     Dosage: UNK
     Route: 065
     Dates: start: 20150625
  16. ATRALIN//TRETINOIN [Concomitant]
     Indication: DERMATOSIS
     Dosage: UNK
     Route: 065
     Dates: start: 20141223
  17. BENADRYL [Concomitant]
     Active Substance: DIPHENHYDRAMINE HYDROCHLORIDE
     Indication: SLEEP APNOEA SYNDROME
     Dosage: UNK
     Route: 065
     Dates: start: 20150625
  18. MUPIROCIN. [Concomitant]
     Active Substance: MUPIROCIN
     Indication: DERMATOSIS
     Dosage: UNK
     Route: 065
     Dates: start: 20141223
  19. CLOBETASOL PROPIONATE. [Concomitant]
     Active Substance: CLOBETASOL PROPIONATE
     Indication: DERMATOSIS
     Dosage: UNK
     Route: 065
     Dates: start: 20150114

REACTIONS (22)
  - Haemoglobin decreased [Unknown]
  - Fatigue [Unknown]
  - Tremor [Unknown]
  - Back pain [Unknown]
  - Muscular weakness [Recovered/Resolved]
  - Musculoskeletal stiffness [Recovered/Resolved]
  - Eosinophil count decreased [Unknown]
  - Leukopenia [Unknown]
  - Ear pain [Recovered/Resolved]
  - Pain in extremity [Unknown]
  - Back pain [Recovered/Resolved]
  - Neutrophil count decreased [Unknown]
  - Muscular weakness [Unknown]
  - Lymphopenia [Unknown]
  - Bladder dysfunction [Recovered/Resolved]
  - Anaemia [Unknown]
  - Hypertension [Unknown]
  - Hypoaesthesia [Recovered/Resolved]
  - Musculoskeletal pain [Unknown]
  - Blood alkaline phosphatase increased [Unknown]
  - Asthenia [Unknown]
  - Hypoaesthesia [Unknown]

NARRATIVE: CASE EVENT DATE: 20120927
